FAERS Safety Report 9691066 (Version 3)
Quarter: 2013Q4

REPORT INFORMATION
  Report Type: Spontaneous
  Country: US (occurrence: US)
  Receive Date: 20131115
  Receipt Date: 20131230
  Transmission Date: 20140711
  Serious: Yes (Hospitalization)
  Sender: FDA-Public Use
  Company Number: US-JNJFOC-20130907420

PATIENT
  Age: 47 Year
  Sex: Male
  Weight: 76.2 kg

DRUGS (6)
  1. REMICADE [Suspect]
     Indication: COLITIS ULCERATIVE
     Route: 042
     Dates: start: 20130911, end: 201309
  2. REMICADE [Suspect]
     Indication: COLITIS ULCERATIVE
     Route: 042
     Dates: start: 2013
  3. REMICADE [Suspect]
     Indication: COLITIS ULCERATIVE
     Route: 042
     Dates: start: 2013
  4. PREDNISONE [Concomitant]
     Indication: COLITIS ULCERATIVE
     Route: 065
     Dates: start: 201306, end: 201310
  5. ASACOL HD [Concomitant]
     Indication: COLITIS ULCERATIVE
     Route: 065
     Dates: start: 201306
  6. AMBIEN [Concomitant]
     Indication: INSOMNIA
     Dosage: STOPPED ON 22-JUL (YEAR UNSPECIFIED)
     Route: 065
     Dates: end: 20130722

REACTIONS (7)
  - Muscular weakness [Recovered/Resolved]
  - Myalgia [Recovering/Resolving]
  - Musculoskeletal stiffness [Recovering/Resolving]
  - Muscle rigidity [Recovering/Resolving]
  - Hypotension [Recovered/Resolved]
  - Pyrexia [Not Recovered/Not Resolved]
  - Hypokalaemia [Unknown]
